FAERS Safety Report 21627658 (Version 1)
Quarter: 2022Q4

REPORT INFORMATION
  Report Type: Spontaneous
  Country: KR (occurrence: KR)
  Receive Date: 20221122
  Receipt Date: 20221122
  Transmission Date: 20230112
  Serious: Yes (Other)
  Sender: FDA-Public Use
  Company Number: KR-MYLANLABS-2022M1129223

PATIENT
  Age: 67 Year
  Sex: Male

DRUGS (2)
  1. LYRICA [Suspect]
     Active Substance: PREGABALIN
     Indication: Intervertebral disc disorder
     Dosage: 1 DOSAGE FORM, QD
     Route: 065
     Dates: start: 20180818, end: 20180820
  2. LYRICA [Suspect]
     Active Substance: PREGABALIN
     Indication: Lumbar radiculopathy

REACTIONS (2)
  - Hypoxia [Recovered/Resolved]
  - Somnolence [Recovered/Resolved]

NARRATIVE: CASE EVENT DATE: 20180820
